FAERS Safety Report 24431158 (Version 2)
Quarter: 2024Q4

REPORT INFORMATION
  Report Type: Report from Study
  Country: CO (occurrence: CO)
  Receive Date: 20241014
  Receipt Date: 20241113
  Transmission Date: 20250115
  Serious: Yes (Death, Hospitalization, Other)
  Sender: NOVO NORDISK
  Company Number: CO-NOVOPROD-1294033

PATIENT
  Age: 84 Year
  Sex: Female
  Weight: 62 kg

DRUGS (9)
  1. APIDRA [Concomitant]
     Active Substance: INSULIN GLULISINE
     Indication: Type 2 diabetes mellitus
     Dosage: 8 IU, QD
     Route: 058
     Dates: end: 202409
  2. SPIRONOLACTONE [Concomitant]
     Active Substance: SPIRONOLACTONE
     Indication: Renal failure
     Dosage: 1 TABLET
     Route: 048
     Dates: start: 2000, end: 20240904
  3. LANSOPRAZOLE [Concomitant]
     Active Substance: LANSOPRAZOLE
     Indication: Gastritis
     Dosage: 1 TABLET
     Route: 048
     Dates: start: 2017, end: 20240904
  4. ATORVASTATIN [Concomitant]
     Active Substance: ATORVASTATIN
     Indication: Blood triglycerides increased
     Dosage: 1 TABLET
     Route: 048
     Dates: start: 2014, end: 20240904
  5. METHOTREXATE [Concomitant]
     Active Substance: METHOTREXATE
     Indication: Rheumatoid arthritis
     Dosage: 8 TABLETS
     Route: 048
     Dates: start: 2010, end: 20240904
  6. QUETIAPINE [Concomitant]
     Active Substance: QUETIAPINE
     Indication: Sleep disorder
  7. QUETIAPINE [Concomitant]
     Active Substance: QUETIAPINE
     Indication: Depression
     Dosage: STARTED WITH 200 MG ON 2012, STARTED TAKING 50 MG MORE ON 2023
     Route: 048
     Dates: start: 2012, end: 20240904
  8. XULTOPHY 100/3.6 [Suspect]
     Active Substance: INSULIN DEGLUDEC\LIRAGLUTIDE
     Indication: Type 2 diabetes mellitus
     Dosage: 22 DF, QD
     Route: 058
     Dates: start: 2016
  9. XULTOPHY 100/3.6 [Suspect]
     Active Substance: INSULIN DEGLUDEC\LIRAGLUTIDE
     Dosage: 26 DF, QD
     Route: 058
     Dates: start: 2022, end: 20240904

REACTIONS (3)
  - Gastroenteritis [Fatal]
  - Colitis [Fatal]
  - Dementia Alzheimer^s type [Fatal]

NARRATIVE: CASE EVENT DATE: 20220101
